FAERS Safety Report 24651995 (Version 1)
Quarter: 2024Q4

REPORT INFORMATION
  Report Type: Spontaneous
  Country: US (occurrence: US)
  Receive Date: 20241122
  Receipt Date: 20241122
  Transmission Date: 20250114
  Serious: Yes (Hospitalization, Other)
  Sender: Steriscience PTE
  Company Number: US-STERISCIENCE B.V.-2024-ST-001939

PATIENT
  Age: 67 Year
  Sex: Female

DRUGS (5)
  1. BUPIVACAINE [Suspect]
     Active Substance: BUPIVACAINE
     Indication: Pain
     Dosage: 10 MILLIGRAM PER MILLILITRE, QD
  2. BUPIVACAINE [Suspect]
     Active Substance: BUPIVACAINE
     Dosage: 40 MILLIGRAM PER MILLILITRE
  3. BUPIVACAINE [Suspect]
     Active Substance: BUPIVACAINE
     Dosage: 7.2 MILLIGRAM, QD, INFUSION
  4. BUPIVACAINE [Suspect]
     Active Substance: BUPIVACAINE
     Dosage: 10 MILLIGRAM, QD, INFUSION
  5. MORPHINE [Concomitant]
     Active Substance: MORPHINE
     Indication: Pain
     Dosage: 20 MILLIGRAM PER MILLILITRE, PUMP

REACTIONS (4)
  - Areflexia [Unknown]
  - Sensory level abnormal [Unknown]
  - Paralysis [None]
  - Off label use [Unknown]
